FAERS Safety Report 6049492-5 (Version None)
Quarter: 2009Q1

REPORT INFORMATION
  Report Type: 
  Country: None (occurrence: None)
  Receive Date: 20090121
  Receipt Date: 20090113
  Transmission Date: 20090719
  Serious: Yes (Life-Threatening, Hospitalization)
  Sender: FDA-Public Use
  Company Number: TCI2009A00090

PATIENT
  Age: 58 Year
  Sex: Female

DRUGS (4)
  1. ACTOS [Suspect]
     Indication: TYPE 2 DIABETES MELLITUS
     Dosage: 30 MG (30 MG, 1 IN 1 D) 15 MG (15 MG, 1 IN 1 D)
     Route: 048
     Dates: start: 20060101, end: 20060201
  2. ACTOS [Suspect]
     Indication: TYPE 2 DIABETES MELLITUS
     Dosage: 30 MG (30 MG, 1 IN 1 D) 15 MG (15 MG, 1 IN 1 D)
     Route: 048
     Dates: start: 20060201, end: 20081129
  3. NORVASC [Concomitant]
  4. OLMESARTAN MEDOXOMIL [Concomitant]

REACTIONS (4)
  - ABASIA [None]
  - DEPRESSED LEVEL OF CONSCIOUSNESS [None]
  - DIABETIC KETOACIDOSIS [None]
  - TYPE 1 DIABETES MELLITUS [None]
